FAERS Safety Report 8608063-4 (Version None)
Quarter: 2012Q3

REPORT INFORMATION
  Report Type: 
  Country: None (occurrence: None)
  Receive Date: 20120821
  Receipt Date: 20120817
  Transmission Date: 20120928
  Serious: No
  Sender: FDA-Public Use
  Company Number: US-PFIZER INC-2012203140

PATIENT
  Age: 47 Year
  Sex: Female
  Weight: 68.027 kg

DRUGS (4)
  1. EFFEXOR [Suspect]
     Indication: DEPRESSION
     Dosage: UNK
     Route: 048
  2. CYMBALTA [Suspect]
     Dosage: UNK
     Route: 048
     Dates: end: 20120101
  3. EFFEXOR [Suspect]
     Indication: ANXIETY
     Dosage: UNK
     Route: 048
     Dates: start: 20120801, end: 20120814
  4. COLESTID [Concomitant]
     Indication: BLOOD CHOLESTEROL INCREASED
     Dosage: UNK
     Route: 048

REACTIONS (6)
  - WITHDRAWAL SYNDROME [None]
  - DIZZINESS [None]
  - NAUSEA [None]
  - HEADACHE [None]
  - DRUG INEFFECTIVE [None]
  - FATIGUE [None]
